FAERS Safety Report 8398290-6 (Version None)
Quarter: 2012Q2

REPORT INFORMATION
  Report Type: 
  Country: None (occurrence: None)
  Receive Date: 20120531
  Receipt Date: 20120521
  Transmission Date: 20120825
  Serious: Yes (Other)
  Sender: FDA-Public Use
  Company Number: GB-JNJFOC-20090406278

PATIENT
  Sex: Female
  Weight: 68 kg

DRUGS (15)
  1. INFLIXIMAB [Suspect]
     Indication: CROHN'S DISEASE
     Dosage: START TIME 10:00    STOP TIME 11:00
     Route: 042
     Dates: start: 20090605
  2. INFLIXIMAB [Suspect]
     Dosage: START TIME 10:00    STOP TIME 11:00
     Route: 042
     Dates: start: 20090424
  3. FERROUS SULFATE TAB [Concomitant]
     Indication: CROHN'S DISEASE
     Dates: start: 20090408
  4. PREDNISOLONE [Concomitant]
     Indication: CROHN'S DISEASE
     Dosage: REDUCING DOSE
     Dates: start: 20090718
  5. ENOXAPARIN [Concomitant]
     Indication: PROPHYLAXIS
     Dates: start: 20090716, end: 20090718
  6. INFLIXIMAB [Suspect]
     Dosage: START TIME 10:05    STOP TIME 11:05
     Route: 042
     Dates: start: 20081212
  7. INFLIXIMAB [Suspect]
     Route: 042
     Dates: start: 20090814
  8. INFLIXIMAB [Suspect]
     Dosage: START TIME 10:00    STOP TIME 11:00
     Route: 042
     Dates: start: 20090306
  9. AUGMENTIN [Concomitant]
     Indication: PREOPERATIVE CARE
     Dosage: FREQUENCY: STAT
     Dates: start: 20090716, end: 20090716
  10. INFLIXIMAB [Suspect]
     Route: 042
     Dates: start: 20081031
  11. ACETAMINOPHEN [Concomitant]
     Indication: PAIN
     Dates: start: 20090716, end: 20090701
  12. DICLOFENAC [Concomitant]
     Indication: PAIN
     Dates: start: 20090716, end: 20090718
  13. INFLIXIMAB [Suspect]
     Dosage: START TIME 9:40  STOP TIME 10:45
     Route: 042
     Dates: start: 20090130
  14. OLSALAZINE [Concomitant]
     Indication: CROHN'S DISEASE
     Dates: start: 20080604
  15. METRONIDAZOLE [Concomitant]
     Indication: CROHN'S DISEASE
     Dates: start: 20090408, end: 20090421

REACTIONS (2)
  - CAESAREAN SECTION [None]
  - MATERNAL EXPOSURE DURING PREGNANCY [None]
